FAERS Safety Report 6727316-8 (Version None)
Quarter: 2010Q2

REPORT INFORMATION
  Report Type: 
  Country: None (occurrence: None)
  Receive Date: 20100517
  Receipt Date: 20100511
  Transmission Date: 20101027
  Serious: Yes (Other)
  Sender: FDA-Public Use
  Company Number: IT-JNJFOC-20100501860

PATIENT
  Sex: Female

DRUGS (6)
  1. LEVOFLOXACIN [Suspect]
     Indication: BRONCHOPNEUMONIA
     Route: 042
     Dates: start: 20100328, end: 20100328
  2. COUMADIN [Concomitant]
  3. LASIX [Concomitant]
  4. LANOXIN [Concomitant]
  5. SINVACOR [Concomitant]
  6. TACHIPIRINA [Concomitant]

REACTIONS (4)
  - CHOLESTASIS [None]
  - HAEMOLYSIS [None]
  - HEPATIC FUNCTION ABNORMAL [None]
  - LIVER DISORDER [None]
